FAERS Safety Report 21233582 (Version 4)
Quarter: 2025Q2

REPORT INFORMATION
  Report Type: Spontaneous
  Country: GB (occurrence: GB)
  Receive Date: 20220819
  Receipt Date: 20250623
  Transmission Date: 20250716
  Serious: Yes (Hospitalization)
  Sender: BRISTOL-MYERS SQUIBB COMPANY
  Company Number: GB-TAKEDA-2021TUS015120

PATIENT
  Sex: Female

DRUGS (14)
  1. REVLIMID [Suspect]
     Active Substance: LENALIDOMIDE
     Indication: Plasma cell myeloma refractory
     Dosage: 10 MILLIGRAM
     Route: 048
     Dates: start: 201805
  2. DEXAMETHASONE [Suspect]
     Active Substance: DEXAMETHASONE
     Indication: Plasma cell myeloma refractory
     Dosage: 10 MILLIGRAM, EVERY WEEK
  3. DEXAMETHASONE [Suspect]
     Active Substance: DEXAMETHASONE
     Dosage: 10 MILLIGRAM, ONCE A DAY
     Dates: start: 201805
  4. ACYCLOVIR [Suspect]
     Active Substance: ACYCLOVIR
     Indication: Product used for unknown indication
  5. ACYCLOVIR [Suspect]
     Active Substance: ACYCLOVIR
     Dosage: 800 MILLIGRAM
  6. ACYCLOVIR [Suspect]
     Active Substance: ACYCLOVIR
  7. IXAZOMIB [Suspect]
     Active Substance: IXAZOMIB
     Indication: Plasma cell myeloma refractory
     Dosage: 2.5 MILLIGRAM, EVERY WEEK
     Route: 048
     Dates: start: 201805
  8. IXAZOMIB [Suspect]
     Active Substance: IXAZOMIB
     Dosage: 5 MILLIGRAM, EVERY WEEK
     Route: 048
     Dates: start: 201805
  9. IXAZOMIB [Suspect]
     Active Substance: IXAZOMIB
     Dosage: 3 MILLIGRAM, EVERY WEEK
     Route: 048
     Dates: start: 201805
  10. IXAZOMIB [Suspect]
     Active Substance: IXAZOMIB
     Dosage: 1 MILLIGRAM, EVERY WEEK
     Route: 048
     Dates: start: 201805
  11. LANSOPRAZOLE [Suspect]
     Active Substance: LANSOPRAZOLE
     Indication: Product used for unknown indication
     Dosage: 30 MILLIGRAM, ONCE A DAY
  12. LANSOPRAZOLE [Suspect]
     Active Substance: LANSOPRAZOLE
  13. METOCLOPRAMIDE [Suspect]
     Active Substance: METOCLOPRAMIDE
     Indication: Product used for unknown indication
     Dosage: 10 MILLIGRAM, ONCE A DAY
  14. LOPERAMIDE [Concomitant]
     Active Substance: LOPERAMIDE
     Indication: Product used for unknown indication

REACTIONS (6)
  - Panic attack [Not Recovered/Not Resolved]
  - Pain [Not Recovered/Not Resolved]
  - Peripheral swelling [Unknown]
  - Chronic obstructive pulmonary disease [Unknown]
  - Swelling [Unknown]
  - Product dose omission issue [Unknown]
